FAERS Safety Report 7676151-5 (Version None)
Quarter: 2011Q3

REPORT INFORMATION
  Report Type: 
  Country: None (occurrence: None)
  Receive Date: 20110805
  Receipt Date: 20110721
  Transmission Date: 20111222
  Serious: Yes (Death)
  Sender: FDA-Public Use
  Company Number: 2011MA009242

PATIENT
  Age: 34 Year
  Sex: Female

DRUGS (2)
  1. FLUDARABINE PHOSPHATE [Suspect]
     Indication: METASTATIC MALIGNANT MELANOMA
     Dosage: 25 MG/M**2
  2. CYCLOPHOSPHAMIDE [Suspect]
     Indication: METASTATIC MALIGNANT MELANOMA
     Dosage: 60 MG/KG

REACTIONS (3)
  - NEOPLASM PROGRESSION [None]
  - PREMATURE MENOPAUSE [None]
  - METASTATIC MALIGNANT MELANOMA [None]
